FAERS Safety Report 15965442 (Version 1)
Quarter: 2019Q1

REPORT INFORMATION
  Report Type: Report from Study
  Country: FR (occurrence: FR)
  Receive Date: 20190215
  Receipt Date: 20190215
  Transmission Date: 20190418
  Serious: Yes (Other)
  Sender: FDA-Public Use
  Company Number: FR-AUROBINDO-AUR-APL-2019-008829

PATIENT

DRUGS (6)
  1. DORZOLAMIDE+TIMOLOL DROP [Suspect]
     Active Substance: DORZOLAMIDE HYDROCHLORIDE\TIMOLOL MALEATE
     Indication: PRODUCT USED FOR UNKNOWN INDICATION
     Dosage: UNK, TWICE A DAY
     Route: 061
  2. ACETAZOLAMIDE. [Suspect]
     Active Substance: ACETAZOLAMIDE
     Indication: PRODUCT USED FOR UNKNOWN INDICATION
     Dosage: 250 MILLIGRAM, 1/2 X 3
     Route: 048
  3. LATANOPROST EYE DROPS, SOLUTION [Suspect]
     Active Substance: LATANOPROST
     Indication: PRODUCT USED FOR UNKNOWN INDICATION
     Dosage: UNK, ONCE A DAY
     Route: 061
  4. BRIMONIDINE [Suspect]
     Active Substance: BRIMONIDINE TARTRATE
     Indication: PRODUCT USED FOR UNKNOWN INDICATION
     Dosage: UNK, TWICE A DAY
     Route: 061
  5. PILOCARPINE. [Suspect]
     Active Substance: PILOCARPINE
     Indication: PRODUCT USED FOR UNKNOWN INDICATION
     Dosage: UNK, TWICE A DAY
     Route: 061
  6. DEXAMETHASONE PHOSPHATE;NEOMYCIN [Suspect]
     Active Substance: DEXAMETHASONE\NEOMYCIN
     Indication: PRODUCT USED FOR UNKNOWN INDICATION
     Dosage: UNK, TWICE A DAY
     Route: 065

REACTIONS (7)
  - Open angle glaucoma [Unknown]
  - Blepharitis [Unknown]
  - Hyperaemia [Unknown]
  - Drug ineffective [Unknown]
  - Toxicity to various agents [Unknown]
  - Condition aggravated [Unknown]
  - Ocular surface disease [Recovering/Resolving]
